FAERS Safety Report 12936250 (Version 1)
Quarter: 2016Q4

REPORT INFORMATION
  Report Type: Spontaneous
  Country: GB (occurrence: GB)
  Receive Date: 20161114
  Receipt Date: 20161114
  Transmission Date: 20170207
  Serious: Yes (Hospitalization)
  Sender: FDA-Public Use
  Company Number: GB-AUROBINDO-AUR-APL-2016-13845

PATIENT
  Age: 43 Year
  Sex: Male

DRUGS (1)
  1. CIPROFLOXACIN. [Suspect]
     Active Substance: CIPROFLOXACIN
     Indication: GASTROENTERITIS
     Dosage: 500 MG, EVERY 12 HOURS
     Route: 048

REACTIONS (3)
  - Cytopenia [Recovering/Resolving]
  - Clostridium difficile colitis [Recovering/Resolving]
  - Toxicity to various agents [Recovering/Resolving]
